FAERS Safety Report 9834387 (Version 2)
Quarter: 2014Q1

REPORT INFORMATION
  Report Type: Spontaneous
  Country: BR (occurrence: BR)
  Receive Date: 20140122
  Receipt Date: 20140128
  Transmission Date: 20141002
  Serious: Yes (Other)
  Sender: FDA-Public Use
  Company Number: BR-ASTRAZENECA-2014SE03601

PATIENT
  Age: 83 Year
  Sex: Female
  Weight: 67 kg

DRUGS (5)
  1. CRESTOR [Suspect]
     Indication: BLOOD CHOLESTEROL INCREASED
     Route: 048
     Dates: start: 201309
  2. ACTOS [Concomitant]
     Indication: DIABETES MELLITUS
     Dosage: DAILY
     Route: 048
  3. AMARYL [Concomitant]
     Indication: DIABETES MELLITUS
     Dosage: DAILY
     Route: 048
  4. ASPIRINA PREVENT [Concomitant]
     Dosage: DAILY
     Route: 048
  5. SUSTRATE [Concomitant]
     Dosage: DAILY
     Route: 048

REACTIONS (1)
  - Coronary artery occlusion [Not Recovered/Not Resolved]
